FAERS Safety Report 5358487-6 (Version None)
Quarter: 2007Q2

REPORT INFORMATION
  Report Type: 
  Country: None (occurrence: None)
  Receive Date: 20070601
  Receipt Date: 20070214
  Transmission Date: 20071010
  Serious: No
  Sender: FDA-Public Use
  Company Number: US-1160909

PATIENT
  Age: 68 Year
  Sex: Male

DRUGS (1)
  1. NEVANAC [Suspect]
     Dosage: (OPHTHALMIC)
     Route: 047

REACTIONS (6)
  - CONJUNCTIVAL SCAR [None]
  - HYPERSENSITIVITY [None]
  - KERATITIS [None]
  - PHOTOPHOBIA [None]
  - PYREXIA [None]
  - VISUAL ACUITY REDUCED [None]
